FAERS Safety Report 5027202-8 (Version None)
Quarter: 2006Q2

REPORT INFORMATION
  Report Type: 
  Country: None (occurrence: None)
  Receive Date: 20060501
  Receipt Date: 20051226
  Transmission Date: 20061013
  Serious: No
  Sender: FDA-Public Use
  Company Number: 2005PV006257

PATIENT
  Age: 71 Year
  Sex: Female

DRUGS (2)
  1. SYMLIN [Suspect]
     Indication: DIABETES MELLITUS NON-INSULIN-DEPENDENT
     Dosage: 90 MCG; TID; SC; SEE IMAGE
     Route: 058
     Dates: start: 20051101, end: 20051130
  2. SYMLIN [Suspect]
     Indication: DIABETES MELLITUS NON-INSULIN-DEPENDENT
     Dosage: 90 MCG; TID; SC; SEE IMAGE
     Route: 058
     Dates: start: 20051201

REACTIONS (2)
  - DIARRHOEA [None]
  - RHINORRHOEA [None]
